FAERS Safety Report 26095917 (Version 2)
Quarter: 2025Q4

REPORT INFORMATION
  Report Type: Spontaneous
  Country: EU (occurrence: EU)
  Receive Date: 20251127
  Receipt Date: 20251211
  Transmission Date: 20260117
  Serious: Yes (Hospitalization, Other)
  Sender: TEVA
  Company Number: EU-TEVA-VS-3396110

PATIENT
  Age: 72 Year
  Sex: Male

DRUGS (16)
  1. PREDNISOLONE [Suspect]
     Active Substance: PREDNISOLONE
     Indication: Granulomatosis with polyangiitis
     Route: 065
  2. VORICONAZOLE [Suspect]
     Active Substance: VORICONAZOLE
     Indication: Bronchopulmonary aspergillosis
     Route: 065
  3. VORICONAZOLE [Suspect]
     Active Substance: VORICONAZOLE
     Indication: Bronchopulmonary aspergillosis
     Dosage: DOSAGE ADJUSTED AS PER TDM REQUIREMENT
     Route: 065
  4. VORICONAZOLE [Suspect]
     Active Substance: VORICONAZOLE
     Indication: Bronchopulmonary aspergillosis
     Route: 065
  5. AMPHOTERICIN B [Suspect]
     Active Substance: AMPHOTERICIN B
     Indication: Bronchopulmonary aspergillosis
     Dosage: RECEIVED INTRACAVITARY IRRIGATION 50 MG IN 20ML OF 5% GLUCOSE SOLUTION
     Route: 065
  6. AMPHOTERICIN B [Suspect]
     Active Substance: AMPHOTERICIN B
     Indication: Bronchopulmonary aspergillosis
     Route: 042
  7. AMPHOTERICIN B [Suspect]
     Active Substance: AMPHOTERICIN B
     Indication: Bronchopulmonary aspergillosis
     Route: 042
  8. POSACONAZOLE [Suspect]
     Active Substance: POSACONAZOLE
     Indication: Bronchopulmonary aspergillosis
     Route: 048
  9. POSACONAZOLE [Suspect]
     Active Substance: POSACONAZOLE
     Indication: Bronchopulmonary aspergillosis
     Route: 048
  10. RITUXIMAB [Suspect]
     Active Substance: RITUXIMAB
     Indication: Granulomatosis with polyangiitis
     Route: 065
  11. ISAVUCONAZOLE [Suspect]
     Active Substance: ISAVUCONAZOLE
     Indication: Bronchopulmonary aspergillosis
     Dosage: RECEIVED FOR 3 TIMES THE FIRST 24 HOURS
     Route: 065
  12. ISAVUCONAZOLE [Suspect]
     Active Substance: ISAVUCONAZOLE
     Indication: Bronchopulmonary aspergillosis
     Dosage: WITH TDM FOR ISAVUCONAZOLE WAS 3 MG/L
     Route: 065
  13. ISAVUCONAZOLE [Suspect]
     Active Substance: ISAVUCONAZOLE
     Indication: Bronchopulmonary aspergillosis
     Route: 065
  14. ISAVUCONAZOLE [Suspect]
     Active Substance: ISAVUCONAZOLE
     Indication: Bronchopulmonary aspergillosis
     Dosage: RECEIVED LOADING DOSE
     Route: 065
  15. CASPOFUNGIN [Suspect]
     Active Substance: CASPOFUNGIN
     Indication: Bronchopulmonary aspergillosis
     Route: 065
  16. CASPOFUNGIN [Suspect]
     Active Substance: CASPOFUNGIN
     Indication: Bronchopulmonary aspergillosis
     Dosage: LOADING DOSE
     Route: 065

REACTIONS (9)
  - Aspergillus infection [Recovered/Resolved]
  - Hepatic enzyme increased [Recovered/Resolved]
  - Rash [Unknown]
  - Bronchopulmonary aspergillosis [Recovered/Resolved]
  - Lung abscess [Recovering/Resolving]
  - Polyneuropathy [Recovering/Resolving]
  - Bacterial infection [Recovering/Resolving]
  - Pruritus [Unknown]
  - Drug ineffective [Unknown]
